FAERS Safety Report 8222900-7 (Version None)
Quarter: 2012Q1

REPORT INFORMATION
  Report Type: 
  Country: None (occurrence: None)
  Receive Date: 20120320
  Receipt Date: 20120305
  Transmission Date: 20120608
  Serious: Yes (Other)
  Sender: FDA-Public Use
  Company Number: CHPA2012US004536

PATIENT
  Sex: Female

DRUGS (3)
  1. EXCEDRIN (MIGRAINE) [Suspect]
     Indication: TENSION HEADACHE
     Dosage: 0.5 DF, PRN
     Route: 048
  2. ASPIRIN [Concomitant]
     Dosage: UNK
     Dates: start: 20120227
  3. NSAID'S [Suspect]
     Indication: HEADACHE
     Dosage: UNK
     Dates: start: 19920101

REACTIONS (6)
  - UNDERDOSE [None]
  - CARDIAC FLUTTER [None]
  - FIBROMYALGIA [None]
  - HELICOBACTER INFECTION [None]
  - OSTEOPOROSIS [None]
  - DYSPNOEA [None]
